FAERS Safety Report 4802853-1 (Version None)
Quarter: 2005Q4

REPORT INFORMATION
  Report Type: 
  Country: None (occurrence: None)
  Receive Date: 20051013
  Receipt Date: 20050930
  Transmission Date: 20060501
  Serious: Yes (Hospitalization)
  Sender: FDA-Public Use
  Company Number: DEU-2005-0001716

PATIENT
  Age: 77 Year
  Sex: Female
  Weight: 67 kg

DRUGS (8)
  1. OXYCODONE HCL [Suspect]
     Indication: BACK PAIN
     Dosage: SEE IMAGE
     Route: 048
     Dates: start: 20050824, end: 20050921
  2. OXYCODONE HCL [Suspect]
     Indication: BACK PAIN
     Dosage: SEE IMAGE
     Route: 048
     Dates: start: 20050928, end: 20050929
  3. OXYCODONE KAPSEAL 5MG (OXY IR CAPSULE 5 MG) (OXYCODONE HYDROCHLORIDE) [Suspect]
     Indication: BACK PAIN
     Dosage: ORAL
     Route: 048
  4. SEREVENT [Concomitant]
  5. SANASTHMYL (BECLOMETASONE DIPROPIONATE) [Concomitant]
  6. SAROTEN ^BAYER VITAL^ (AMITRIPYTYLINE HYDROCHLORIDE) [Concomitant]
  7. MOVICOL (SODIUM BICARBONATE, POTSSIUM CHLORIDE, SODIUM CHLORIDE, MACRO [Concomitant]
  8. METOCLOPRAMIDE [Concomitant]

REACTIONS (2)
  - GASTRITIS HAEMORRHAGIC [None]
  - HYPONATRAEMIA [None]
